FAERS Safety Report 5517578-7 (Version None)
Quarter: 2007Q4

REPORT INFORMATION
  Report Type: 
  Country: None (occurrence: None)
  Receive Date: 20071114
  Receipt Date: 20071106
  Transmission Date: 20080405
  Serious: Yes (Hospitalization)
  Sender: FDA-Public Use
  Company Number: US-SANOFI-SYNTHELABO-A01200712498

PATIENT
  Age: 20 Year
  Sex: Male
  Weight: 73 kg

DRUGS (4)
  1. PROMETHAZINE [Interacting]
     Indication: DRUG USE FOR UNKNOWN INDICATION
     Route: 030
  2. PROPOFOL [Interacting]
     Indication: SEDATION
     Dosage: TOTAL OF 160 MG OVER 5 MIN (BOLUS OF 20 MG, 20 MG, 40 MG, 40 MG AND 40 MG)
     Route: 040
  3. PETHIDINE [Suspect]
     Indication: DRUG USE FOR UNKNOWN INDICATION
     Route: 030
  4. ALCOHOL [Concomitant]
     Dosage: A COUPLE OF BEERS
     Route: 048

REACTIONS (8)
  - AGITATION [None]
  - AMNESIA [None]
  - ANTICHOLINERGIC SYNDROME [None]
  - BLOOD CREATINE PHOSPHOKINASE INCREASED [None]
  - BLOOD PRESSURE [None]
  - CONFUSIONAL STATE [None]
  - DRUG INTERACTION [None]
  - HEART RATE INCREASED [None]
